FAERS Safety Report 4732553-8 (Version None)
Quarter: 2005Q3

REPORT INFORMATION
  Report Type: 
  Country: None (occurrence: None)
  Receive Date: 20050801
  Receipt Date: 20050801
  Transmission Date: 20060218
  Serious: Yes (Disabling)
  Sender: FDA-Public Use
  Company Number: None

PATIENT
  Age: 76 Year
  Sex: Male
  Weight: 92.5 kg

DRUGS (1)
  1. AMIODARONE [Suspect]
     Dosage: 200 MG QD
     Dates: start: 19980827, end: 20050425

REACTIONS (2)
  - PULMONARY FUNCTION TEST ABNORMAL [None]
  - PULMONARY TOXICITY [None]
